FAERS Safety Report 15554211 (Version 1)
Quarter: 2018Q4

REPORT INFORMATION
  Report Type: Spontaneous
  Country: US (occurrence: US)
  Receive Date: 20181025
  Receipt Date: 20181025
  Transmission Date: 20190205
  Serious: No
  Sender: FDA-Public Use
  Company Number: None

PATIENT
  Age: 71 Year
  Sex: Female
  Weight: 65.25 kg

DRUGS (7)
  1. MIFTAZIPINE [Concomitant]
  2. ESCITALOPRAM [Suspect]
     Active Substance: ESCITALOPRAM OXALATE
     Indication: DEPRESSION
     Dosage: ?          QUANTITY:2 TABLET(S);?
     Route: 048
     Dates: start: 20181023, end: 20181024
  3. XANAX [Concomitant]
     Active Substance: ALPRAZOLAM
  4. ANORO INHALER [Concomitant]
  5. ZYRTEC [Concomitant]
     Active Substance: CETIRIZINE HYDROCHLORIDE
  6. LEXAPRO [Concomitant]
     Active Substance: ESCITALOPRAM OXALATE
  7. FLUTICASONE PROPIANATE [Concomitant]

REACTIONS (3)
  - Paraesthesia [None]
  - Peripheral coldness [None]
  - Fear [None]

NARRATIVE: CASE EVENT DATE: 20181024
